FAERS Safety Report 5879204-7 (Version None)
Quarter: 2008Q3

REPORT INFORMATION
  Report Type: 
  Country: None (occurrence: None)
  Receive Date: 20080912
  Receipt Date: 20080903
  Transmission Date: 20090109
  Serious: Yes (Other)
  Sender: FDA-Public Use
  Company Number: US-ROCHE-584469

PATIENT
  Sex: Female
  Weight: 59 kg

DRUGS (3)
  1. CAPECITABINE [Suspect]
     Indication: DRUG USE FOR UNKNOWN INDICATION
     Dosage: 1500 MG IN AM AND 1500 MG IN PM
     Route: 048
     Dates: start: 20080522
  2. LEXAPRO [Concomitant]
  3. AMBIEN [Concomitant]

REACTIONS (2)
  - DISEASE PROGRESSION [None]
  - LENTIGO [None]
